FAERS Safety Report 7231467-1 (Version None)
Quarter: 2011Q1

REPORT INFORMATION
  Report Type: 
  Country: None (occurrence: None)
  Receive Date: 20110118
  Receipt Date: 20110113
  Transmission Date: 20110831
  Serious: Yes (Other)
  Sender: FDA-Public Use
  Company Number: BR-PFIZER INC-2010172949

PATIENT
  Age: 40 Year
  Sex: Female
  Weight: 68 kg

DRUGS (13)
  1. FRONTAL [Suspect]
     Indication: DEPRESSION
  2. FRONTAL [Suspect]
     Indication: SLEEP DISORDER
  3. PAMELOR [Concomitant]
     Indication: ANXIETY
     Dosage: 10 MG, UNK
     Dates: start: 20101101
  4. CITALOPRAM [Concomitant]
     Indication: ANXIETY
     Dosage: 40 MG, UNK
     Dates: start: 20101101
  5. FORASEQ [Concomitant]
     Indication: ASTHMA
     Dosage: UNK
     Dates: start: 20080101
  6. CITALOPRAM [Concomitant]
     Indication: STRESS
  7. FRONTAL [Suspect]
     Indication: PHOBIA
  8. FLUIR [Concomitant]
     Indication: ASTHMA
     Dosage: UNK
     Dates: start: 20050101
  9. FRONTAL [Suspect]
     Indication: SOCIAL PHOBIA
  10. RAZAPINA [Concomitant]
     Indication: SLEEP DISORDER
     Dosage: UNK
     Dates: start: 20101101
  11. FRONTAL [Suspect]
     Indication: TENSION
     Dosage: 2 MG, 3X/DAY
     Route: 048
     Dates: start: 20101101
  12. PAMELOR [Concomitant]
     Indication: STRESS
  13. ALENIA [Concomitant]
     Indication: ASTHMA
     Dosage: UNK
     Dates: start: 20080101

REACTIONS (9)
  - HEADACHE [None]
  - PARAESTHESIA [None]
  - NAUSEA [None]
  - VOMITING [None]
  - DYSPEPSIA [None]
  - MOUTH INJURY [None]
  - ABDOMINAL DISCOMFORT [None]
  - FORMICATION [None]
  - WITHDRAWAL SYNDROME [None]
